FAERS Safety Report 7688655 (Version 2)
Quarter: 2012Q4

REPORT INFORMATION
  Report Type: 
  Country: US (occurrence: US)
  Receive Date: 20101201
  Receipt Date: 20121211
  Transmission Date: 20130627
  Serious: Yes (Other)
  Sender: FDA-Public Use
  Company Number: US-ROCHE-722558

PATIENT
  Age: 46 None
  Sex: Female
  Weight: 51.7 kg

DRUGS (3)
  1. ACCUTANE [Suspect]
     Indication: ACNE
     Route: 065
     Dates: start: 19830622, end: 19831019
  2. ACCUTANE [Suspect]
     Route: 065
     Dates: start: 19870831, end: 19871017
  3. ACCUTANE [Suspect]
     Route: 065
     Dates: start: 19930402, end: 19930707

REACTIONS (6)
  - Colitis [Unknown]
  - Inflammatory bowel disease [Unknown]
  - Depression [Unknown]
  - Suicidal ideation [Unknown]
  - Upper gastrointestinal haemorrhage [Recovering/Resolving]
  - Skin fissures [Unknown]
